FAERS Safety Report 15906137 (Version 1)
Quarter: 2019Q1

REPORT INFORMATION
  Report Type: Spontaneous
  Country: US (occurrence: US)
  Receive Date: 20190204
  Receipt Date: 20190204
  Transmission Date: 20190417
  Serious: No
  Sender: FDA-Public Use
  Company Number: US-ENDO PHARMACEUTICALS INC-2018-042363

PATIENT
  Sex: Male

DRUGS (1)
  1. CABERGOLINE. [Suspect]
     Active Substance: CABERGOLINE
     Indication: PITUITARY TUMOUR
     Dosage: 0.5 MG, UNKNOWN
     Route: 048

REACTIONS (10)
  - Dry mouth [Unknown]
  - Orchitis noninfective [Unknown]
  - Abdominal pain [Unknown]
  - Headache [Unknown]
  - Visual impairment [Unknown]
  - Constipation [Unknown]
  - Nervousness [Unknown]
  - Abdominal discomfort [Unknown]
  - Nausea [Unknown]
  - Depression [Unknown]
